FAERS Safety Report 4404583-7 (Version None)
Quarter: 2004Q3

REPORT INFORMATION
  Report Type: 
  Country: None (occurrence: None)
  Receive Date: 20040720
  Receipt Date: 20040709
  Transmission Date: 20050211
  Serious: Yes (Death, Other)
  Sender: FDA-Public Use
  Company Number: 2004223213DE

PATIENT
  Age: 24 Year
  Sex: Female

DRUGS (2)
  1. DALTEPARIN SODIUM(DALTEPARIN SODIUM) SOLUTION, STERILE [Suspect]
     Indication: THROMBOSIS PROPHYLAXIS
  2. HEPARIN SODIUM INJECTION [Suspect]
     Indication: THROMBOSIS

REACTIONS (9)
  - CIRCULATORY COLLAPSE [None]
  - DRUG INEFFECTIVE [None]
  - INTESTINAL ISCHAEMIA [None]
  - MESENTERIC VEIN THROMBOSIS [None]
  - MULTI-ORGAN FAILURE [None]
  - PLATELET COUNT INCREASED [None]
  - PORTAL VEIN THROMBOSIS [None]
  - POSTOPERATIVE THROMBOSIS [None]
  - PULMONARY EMBOLISM [None]
